FAERS Safety Report 8185041-3 (Version None)
Quarter: 2012Q1

REPORT INFORMATION
  Report Type: 
  Country: None (occurrence: None)
  Receive Date: 20120301
  Receipt Date: 20120216
  Transmission Date: 20120608
  Serious: Yes (Hospitalization, Other)
  Sender: FDA-Public Use
  Company Number: CIP11001932

PATIENT
  Age: 53 Year
  Sex: Female

DRUGS (9)
  1. CALCIUM CARBONATE [Concomitant]
  2. ACTONEL [Suspect]
     Dosage: 35 MG, ORAL
     Route: 048
     Dates: start: 20061001, end: 20070701
  3. ALENDRONATE SODIUM [Suspect]
     Indication: OSTEOPOROSIS
     Dosage: 70 MG, ORAL ; ORAL
     Route: 048
     Dates: start: 20080201, end: 20090622
  4. ALENDRONATE SODIUM [Suspect]
     Indication: OSTEOPOROSIS
     Dosage: 70 MG, ORAL ; ORAL
     Route: 048
     Dates: start: 20090727, end: 20101020
  5. LEVOTHYROXINE SODIUM [Concomitant]
  6. FOSAMAX [Suspect]
     Indication: OSTEOPOROSIS
     Dosage: 70 MG, ORAL ; ORAL
     Route: 048
     Dates: start: 20080101
  7. FOSAMAX [Suspect]
     Indication: OSTEOPOROSIS
     Dosage: 70 MG, ORAL ; ORAL
     Route: 048
     Dates: start: 20070901, end: 20080101
  8. FOSAMAX PLUS D [Suspect]
     Indication: OSTEOPOROSIS
     Dosage: ORAL
     Route: 048
  9. CRESTOR [Concomitant]

REACTIONS (17)
  - PATHOLOGICAL FRACTURE [None]
  - LOW TURNOVER OSTEOPATHY [None]
  - TOXICITY TO VARIOUS AGENTS [None]
  - OSTEOGENESIS IMPERFECTA [None]
  - FALL [None]
  - PAIN IN EXTREMITY [None]
  - LIMB DISCOMFORT [None]
  - FRACTURE NONUNION [None]
  - STRESS FRACTURE [None]
  - GROIN PAIN [None]
  - OEDEMA PERIPHERAL [None]
  - GAIT DISTURBANCE [None]
  - SKELETAL INJURY [None]
  - BONE PAIN [None]
  - BONE GRAFT [None]
  - FEMUR FRACTURE [None]
  - DEVICE FAILURE [None]
